FAERS Safety Report 9059990 (Version 1)
Quarter: 2013Q1

REPORT INFORMATION
  Report Type: Spontaneous
  Country: US (occurrence: None)
  Receive Date: 20130117
  Receipt Date: 20130117
  Transmission Date: 20140127
  Serious: Yes (Hospitalization)
  Sender: FDA-Public Use
  Company Number: AUR-APL-2013-00229

PATIENT
  Age: 17 Year
  Sex: Male

DRUGS (3)
  1. LEVETIRACETAM (LEVETIRACETAM) [Suspect]
     Indication: CONVULSION
     Dosage: 500 MG (250 MG, 2 IN 1 D) UNKNOWN
  2. PHENYTOIN (PHENYTOIN) [Suspect]
  3. CHLORPROMAZINE (CHLORPROMAZINE) [Concomitant]

REACTIONS (2)
  - Pancreatitis acute [None]
  - Dysgeusia [None]
